FAERS Safety Report 9559319 (Version 1)
Quarter: 2013Q3

REPORT INFORMATION
  Report Type: Spontaneous
  Country: FR (occurrence: FR)
  Receive Date: 20130927
  Receipt Date: 20130927
  Transmission Date: 20140515
  Serious: Yes (Hospitalization)
  Sender: FDA-Public Use
  Company Number: PHHY2013FR107563

PATIENT
  Age: 62 Year
  Sex: Male

DRUGS (2)
  1. VOLTARENE [Suspect]
     Dosage: 1 DF, QD
     Route: 030
     Dates: start: 20130628, end: 20130630
  2. ALTIM//CORTIVAZOL [Suspect]
     Dosage: 1 DF, ONCE/SINGLE
     Dates: start: 20130628, end: 20130628

REACTIONS (4)
  - Arthritis bacterial [Recovered/Resolved]
  - Arthralgia [Unknown]
  - Chills [Unknown]
  - Condition aggravated [Recovered/Resolved]
